FAERS Safety Report 16542875 (Version 2)
Quarter: 2019Q3

REPORT INFORMATION
  Report Type: Spontaneous
  Country: US (occurrence: US)
  Receive Date: 20190709
  Receipt Date: 20190912
  Transmission Date: 20191004
  Serious: Yes (Hospitalization)
  Sender: FDA-Public Use
  Company Number: US-SA-2019SA182187

PATIENT
  Age: 63 Year
  Sex: Female
  Weight: 61.2 kg

DRUGS (45)
  1. METHOTREXATE [METHOTREXATE SODIUM] [Concomitant]
     Active Substance: METHOTREXATE SODIUM
     Dosage: 20 UNK
     Dates: start: 20171117
  2. SIMVASTATIN. [Concomitant]
     Active Substance: SIMVASTATIN
     Dosage: 40 MG, QD
     Route: 065
     Dates: start: 20190531
  3. MIDAZOLAM [Concomitant]
     Active Substance: MIDAZOLAM HYDROCHLORIDE
     Dosage: 3 MG
     Dates: start: 20190603, end: 20190603
  4. DEXAMETHASONE. [Concomitant]
     Active Substance: DEXAMETHASONE
     Indication: ADVERSE EVENT
     Dosage: 10 MG
     Dates: start: 20190610, end: 20190610
  5. CLOPIDOGREL BISULFATE. [Suspect]
     Active Substance: CLOPIDOGREL BISULFATE
     Dosage: 75 MG, QD
     Route: 048
     Dates: start: 20190601, end: 20190601
  6. CLOPIDOGREL BISULFATE. [Suspect]
     Active Substance: CLOPIDOGREL BISULFATE
     Dosage: 75 MG, QD
     Route: 048
     Dates: start: 20190602, end: 20190625
  7. ACETYLSALICYLIC ACID [Suspect]
     Active Substance: ASPIRIN
     Indication: ANTICOAGULANT THERAPY
     Dosage: 100 MG, QD
     Route: 048
     Dates: start: 20190626, end: 20190626
  8. ACETYLSALICYLIC ACID [Suspect]
     Active Substance: ASPIRIN
     Dosage: 100 MG, QD
     Route: 048
     Dates: start: 20190601, end: 20190601
  9. ATENOLOL. [Concomitant]
     Active Substance: ATENOLOL
     Dosage: 100 MG
     Route: 065
     Dates: start: 20180223
  10. FOLIC ACID. [Concomitant]
     Active Substance: FOLIC ACID
     Indication: PROPHYLAXIS
     Dosage: 2 MG, UNK
     Route: 065
     Dates: start: 20190531, end: 20190603
  11. ONDANSETRON [Concomitant]
     Active Substance: ONDANSETRON
     Indication: ADVERSE EVENT
     Dosage: 4 MG
     Dates: start: 20190610, end: 20190610
  12. FENTANYL. [Concomitant]
     Active Substance: FENTANYL
     Dosage: 100 UNK
     Dates: start: 20190610, end: 20190610
  13. CLOPIDOGREL BISULFATE. [Suspect]
     Active Substance: CLOPIDOGREL BISULFATE
     Indication: ANTICOAGULANT THERAPY
     Dosage: 300 MG, QD
     Route: 048
     Dates: start: 20190531, end: 20190531
  14. ACETAMINOPHEN. [Concomitant]
     Active Substance: ACETAMINOPHEN
     Dosage: 650 MG, QD
     Route: 065
     Dates: start: 20190531
  15. XYLOCAINE [Concomitant]
     Active Substance: LIDOCAINE HYDROCHLORIDE
     Dosage: 10 UNK, QD
     Dates: start: 20190603, end: 20190603
  16. CEFAZOLIN [Concomitant]
     Active Substance: CEFAZOLIN
     Indication: ADVERSE EVENT
     Dosage: 1 G
     Dates: start: 20190610, end: 20190611
  17. ACETYLSALICYLIC ACID [Suspect]
     Active Substance: ASPIRIN
     Dosage: 100 MG, QD
     Route: 048
     Dates: start: 20190531, end: 20190531
  18. ADALIMUMAB [Concomitant]
     Active Substance: ADALIMUMAB
     Dosage: 2.5 MG, UNK
     Route: 065
     Dates: start: 20190208
  19. FOLIC ACID. [Concomitant]
     Active Substance: FOLIC ACID
     Dosage: 2 MG, UNK
     Route: 065
     Dates: start: 20180202, end: 20190603
  20. ESTRADIOL. [Concomitant]
     Active Substance: ESTRADIOL
     Dosage: 1 MG, UNK
     Dates: start: 20180506, end: 20190603
  21. SIMVASTATIN. [Concomitant]
     Active Substance: SIMVASTATIN
     Dosage: 40 MG
     Dates: start: 20190531
  22. SODIUM CHLORIDE. [Concomitant]
     Active Substance: SODIUM CHLORIDE
     Indication: ADVERSE EVENT
     Dosage: 1000 MG
     Dates: start: 20190610, end: 20190610
  23. LIDOCAINE. [Concomitant]
     Active Substance: LIDOCAINE
     Indication: ADVERSE EVENT
     Dosage: 60 MG
     Dates: start: 20190610, end: 20190610
  24. CETACAINE [BENZOCAINE;BUTYL AMINOBENZOATE;TETRACAINE HYDROCHLORIDE] [Concomitant]
     Dosage: 2 UNK
     Dates: start: 20190603, end: 20190603
  25. ADALIMUMAB [Concomitant]
     Active Substance: ADALIMUMAB
     Dosage: 40 MG, QD
     Dates: start: 20171220
  26. GADOBENATE DIMEGLUMINE [Concomitant]
     Active Substance: GADOBENATE DIMEGLUMINE
     Dosage: 10 UNK, UNK
     Route: 065
     Dates: start: 20190531, end: 20190531
  27. VENLAFAXINE [Concomitant]
     Active Substance: VENLAFAXINE HYDROCHLORIDE
     Dosage: 75 MG, UNK
     Route: 065
     Dates: start: 20190605
  28. CLOBETASOL 0.05% [Concomitant]
     Active Substance: CLOBETASOL
     Indication: ADVERSE EVENT
     Dosage: 2 G
     Dates: start: 20190610
  29. MORPHINE [Concomitant]
     Active Substance: MORPHINE
     Indication: ADVERSE EVENT
     Dosage: 4 MG
     Dates: start: 20190610, end: 20190610
  30. LACTATED RINGERS SOLUTION [Concomitant]
     Active Substance: CALCIUM CHLORIDE\POTASSIUM CHLORIDE\SODIUM CHLORIDE\SODIUM LACTATE
     Dosage: 20 UNK
     Dates: start: 20190603, end: 20190603
  31. METHOCARBAMOL. [Concomitant]
     Active Substance: METHOCARBAMOL
     Dosage: 500 MG
     Dates: start: 20190223, end: 20190531
  32. PAROXETINE. [Concomitant]
     Active Substance: PAROXETINE
     Dosage: 20 MG, UNK
     Route: 065
     Dates: start: 20190531, end: 20190604
  33. MIDAZOLAM [Concomitant]
     Active Substance: MIDAZOLAM HYDROCHLORIDE
     Indication: ADVERSE EVENT
     Dosage: 2 MG
     Dates: start: 20190603, end: 20190603
  34. CETACAINE [BENZOCAINE;BUTYL AMINOBENZOATE;TETRACAINE HYDROCHLORIDE] [Concomitant]
     Dosage: 2 UNK, QD
     Dates: start: 20190603, end: 20190603
  35. CLOPIDOGREL BISULFATE. [Suspect]
     Active Substance: CLOPIDOGREL BISULFATE
     Dosage: 75 UNK
     Route: 048
     Dates: start: 20190626, end: 20190626
  36. ACETYLSALICYLIC ACID [Suspect]
     Active Substance: ASPIRIN
     Dosage: 100 MG, QD
     Route: 048
     Dates: start: 20190602, end: 20190625
  37. ATENOLOL. [Concomitant]
     Active Substance: ATENOLOL
     Dosage: 100 MG, QD
     Route: 065
     Dates: start: 20190604
  38. METHOTREXATE [METHOTREXATE SODIUM] [Concomitant]
     Active Substance: METHOTREXATE SODIUM
     Dosage: 20 MG, UNK
     Route: 065
     Dates: start: 20190429
  39. IOPAMIDOL [Concomitant]
     Active Substance: IOPAMIDOL
     Dosage: 50 MG, UNK
     Route: 065
     Dates: start: 20190531, end: 20190531
  40. IOPAMIDOL [Concomitant]
     Active Substance: IOPAMIDOL
     Dosage: 40 MG, UNK
     Route: 065
     Dates: start: 20190531, end: 20190531
  41. MIDAZOLAM [Concomitant]
     Active Substance: MIDAZOLAM HYDROCHLORIDE
     Dosage: 4 UNK
     Dates: start: 20190610, end: 20190610
  42. PROPOFOL. [Concomitant]
     Active Substance: PROPOFOL
     Indication: ADVERSE EVENT
     Dosage: 150 MG, QD
     Dates: start: 20190610, end: 20190610
  43. EPHEDRINE AGUETTANT [Concomitant]
     Active Substance: EPHEDRINE
     Indication: ADVERSE EVENT
     Dosage: 30 MG
     Dates: start: 20190610, end: 20190610
  44. VOLTAREN [Concomitant]
     Active Substance: DICLOFENAC SODIUM
     Dosage: 1 UNK
     Dates: start: 20180223, end: 20190531
  45. PROGESTERONE. [Concomitant]
     Active Substance: PROGESTERONE
     Dosage: 100 MG, UNK
     Dates: start: 20180425, end: 20190603

REACTIONS (1)
  - Skin laceration [Recovered/Resolved]

NARRATIVE: CASE EVENT DATE: 20190610
